FAERS Safety Report 7054278-9 (Version None)
Quarter: 2010Q4

REPORT INFORMATION
  Report Type: 
  Country: None (occurrence: None)
  Receive Date: 20101020
  Receipt Date: 20100930
  Transmission Date: 20110411
  Serious: Yes (Other)
  Sender: FDA-Public Use
  Company Number: US-BAYER-201027475NA

PATIENT
  Age: 30 Year
  Sex: Female
  Weight: 73 kg

DRUGS (10)
  1. YASMIN [Suspect]
     Indication: PREMENSTRUAL SYNDROME
     Route: 048
     Dates: start: 20050101, end: 20080101
  2. DIOVAN [Concomitant]
  3. NAPROSYN [Concomitant]
  4. ADVIL [Concomitant]
     Indication: HEADACHE
     Dates: start: 19890101
  5. MOTRIN [Concomitant]
     Indication: MYALGIA
     Dates: start: 19890101
  6. EXCEDRIN (MIGRAINE) [Concomitant]
     Indication: MIGRAINE
     Dates: start: 19890101
  7. ZYRTEC [Concomitant]
     Dosage: FOR SINUS (NOS)
     Dates: start: 20070101
  8. NEXIUM [Concomitant]
     Indication: GASTROOESOPHAGEAL REFLUX DISEASE
     Dates: start: 20070101
  9. WELLBUTRIN [Concomitant]
     Indication: ANXIETY
     Dates: start: 20070101
  10. OVCON-35 [Concomitant]
     Dosage: OFF AND ON OVER THE YEARS (NOS)

REACTIONS (2)
  - CHOLECYSTECTOMY [None]
  - PAIN [None]
